FAERS Safety Report 13037469 (Version 1)
Quarter: 2016Q4

REPORT INFORMATION
  Report Type: Spontaneous
  Country: FR (occurrence: FR)
  Receive Date: 20161216
  Receipt Date: 20161216
  Transmission Date: 20170207
  Serious: Yes (Hospitalization)
  Sender: FDA-Public Use
  Company Number: FR-ASTRAZENECA-2016SF31908

PATIENT
  Age: 19 Year
  Sex: Female

DRUGS (4)
  1. INEXIUM [Suspect]
     Active Substance: ESOMEPRAZOLE
     Indication: GASTRITIS
     Route: 048
     Dates: start: 20161028, end: 20161029
  2. INEXIUM [Suspect]
     Active Substance: ESOMEPRAZOLE
     Indication: GASTRITIS
     Route: 048
     Dates: start: 201609
  3. VOGALENE [Suspect]
     Active Substance: METOPIMAZINE
     Indication: GASTRITIS
     Route: 065
     Dates: start: 20161028, end: 20161102
  4. VOGALENE [Suspect]
     Active Substance: METOPIMAZINE
     Indication: GASTRITIS
     Route: 065
     Dates: start: 201609

REACTIONS (1)
  - Myoclonus [Not Recovered/Not Resolved]

NARRATIVE: CASE EVENT DATE: 20161028
